FAERS Safety Report 23289680 (Version 1)
Quarter: 2023Q4

REPORT INFORMATION
  Report Type: Spontaneous
  Country: US (occurrence: US)
  Receive Date: 20231212
  Receipt Date: 20231212
  Transmission Date: 20240110
  Serious: No
  Sender: FDA-Public Use
  Company Number: US-PFIZER INC-PV202300200968

PATIENT
  Age: 72 Year
  Sex: Female

DRUGS (1)
  1. ZAVZPRET [Suspect]
     Active Substance: ZAVEGEPANT HYDROCHLORIDE
     Indication: Migraine
     Dosage: UNK, AS NEEDED (INSTILL 1 SPRAY IN 1 NOSTRIL ONCE AT ONSET OF MIGRAINE. MAX 1 DOSE IN 24 HRS)

REACTIONS (2)
  - Drug ineffective [Unknown]
  - Burning sensation [Unknown]
